FAERS Safety Report 19995572 (Version 4)
Quarter: 2021Q4

REPORT INFORMATION
  Report Type: Report from Study
  Country: JP (occurrence: JP)
  Receive Date: 20211026
  Receipt Date: 20211207
  Transmission Date: 20220303
  Serious: Yes (Hospitalization)
  Sender: FDA-Public Use
  Company Number: JP-ASTELLAS-2021JP020496

PATIENT
  Age: 76 Year
  Sex: Male
  Weight: 55 kg

DRUGS (8)
  1. ENFORTUMAB VEDOTIN [Suspect]
     Active Substance: ENFORTUMAB VEDOTIN
     Indication: Oropharyngeal cancer
     Dosage: 1.25 MG/KG, ADMINISTERED ON DAY1, DAY8, AND DAY 15 OF EACH CYCLE
     Route: 065
     Dates: start: 20210909, end: 20211020
  2. ENFORTUMAB VEDOTIN [Suspect]
     Active Substance: ENFORTUMAB VEDOTIN
     Dosage: 1.25 MG/KG, ADMINISTERED ON DAY1, DAY8, AND DAY 15 OF EACH CYCLE
     Route: 065
     Dates: start: 20211202
  3. ACETAMINOPHEN [Concomitant]
     Active Substance: ACETAMINOPHEN
     Indication: Cancer pain
     Dosage: 200 MG, AS NEEDED, AT THE TIME OF PAIN
     Route: 048
     Dates: start: 20201020
  4. BETAMETHASONE DIPROPIONATE [Concomitant]
     Active Substance: BETAMETHASONE DIPROPIONATE
     Indication: Rash
     Dosage: UNK UNK, TWICE DAILY, FOR SKIN ERUPTION AREA
     Route: 062
     Dates: start: 20201125
  5. VONOPRAZAN FUMARATE [Concomitant]
     Active Substance: VONOPRAZAN FUMARATE
     Indication: Gastrointestinal disorder prophylaxis
     Dosage: 10 MG, ONCE DAILY, AFTER BREAKFAST
     Route: 048
     Dates: start: 20210424
  6. SULFAMETHOXAZOLE\TRIMETHOPRIM [Concomitant]
     Active Substance: SULFAMETHOXAZOLE\TRIMETHOPRIM
     Indication: Prophylaxis
     Dosage: 1 DF, ONCE DAILY, AFTER BREAKFAST
     Route: 048
     Dates: start: 20210505
  7. PREDONINE [Concomitant]
     Active Substance: PREDNISOLONE
     Indication: Prophylaxis
     Dosage: 7.5 MG, ONCE DAILY, AFTER BREAKFAST
     Route: 048
     Dates: start: 20210514
  8. BONALON [Concomitant]
     Active Substance: ALENDRONATE SODIUM
     Indication: Osteoporosis prophylaxis
     Dosage: 1 DF, ONCE WEEKLY, AT THE TIME OF AWAKENING
     Route: 048
     Dates: start: 20210520

REACTIONS (1)
  - Myocardial infarction [Recovering/Resolving]

NARRATIVE: CASE EVENT DATE: 20211020
